FAERS Safety Report 15953954 (Version 1)
Quarter: 2019Q1

REPORT INFORMATION
  Report Type: Spontaneous
  Country: GB (occurrence: GB)
  Receive Date: 20190212
  Receipt Date: 20190212
  Transmission Date: 20190417
  Serious: Yes (Death, Other)
  Sender: FDA-Public Use
  Company Number: GB-MYLANLABS-2019M1011724

PATIENT
  Age: 26 Year

DRUGS (2)
  1. QUININE [Suspect]
     Active Substance: QUININE
     Dosage: 77 GRAM, QD (77 UNK; ON DAY 2)
  2. QUININE [Suspect]
     Active Substance: QUININE
     Indication: RHEUMATIC FEVER
     Dosage: 46 GRAM, QD (46 G, QD; ON DAY 1)

REACTIONS (2)
  - Delirium [Fatal]
  - Overdose [Fatal]
